FAERS Safety Report 7481120-4 (Version None)
Quarter: 2011Q2

REPORT INFORMATION
  Report Type: 
  Country: None (occurrence: None)
  Receive Date: 20110516
  Receipt Date: 20110502
  Transmission Date: 20111010
  Serious: Yes (Hospitalization, Other)
  Sender: FDA-Public Use
  Company Number: US-ELI_LILLY_AND_COMPANY-US201006004204

PATIENT
  Age: 62 Year
  Sex: Female
  Weight: 56.236 kg

DRUGS (5)
  1. FORTEO [Suspect]
     Indication: OSTEOPOROSIS
     Dosage: 20 UG, DAILY (1/D)
     Route: 058
     Dates: start: 20100201
  2. FORTEO [Suspect]
     Dosage: 20 UG, DAILY (1/D)
     Route: 058
  3. FORTEO [Suspect]
     Dosage: 20 UG, DAILY (1/D)
     Route: 058
  4. SYNTHROID [Concomitant]
     Dosage: 112 MG, QD
  5. PRILOSEC [Concomitant]
     Dosage: 20 MG, BID

REACTIONS (19)
  - HELICOBACTER INFECTION [None]
  - URINE ABNORMALITY [None]
  - ABDOMINAL DISCOMFORT [None]
  - DIARRHOEA [None]
  - MUSCLE SPASMS [None]
  - VOMITING [None]
  - URINE ODOUR ABNORMAL [None]
  - INJECTION SITE HAEMATOMA [None]
  - FOOD POISONING [None]
  - WEIGHT DECREASED [None]
  - GROWING PAINS [None]
  - NAUSEA [None]
  - GASTROINTESTINAL OBSTRUCTION [None]
  - MICTURITION DISORDER [None]
  - FATIGUE [None]
  - MYALGIA [None]
  - CYSTITIS [None]
  - VIRAL INFECTION [None]
  - ERUCTATION [None]
